FAERS Safety Report 4573144-1 (Version None)
Quarter: 2005Q1

REPORT INFORMATION
  Report Type: 
  Country: None (occurrence: None)
  Receive Date: 20050208
  Receipt Date: 20040715
  Transmission Date: 20050727
  Serious: No
  Sender: FDA-Public Use
  Company Number: US-GLAXOSMITHKLINE-A0518988A

PATIENT
  Age: 53 Year
  Sex: Female
  Weight: 57.3 kg

DRUGS (2)
  1. PAXIL [Suspect]
     Indication: DEPRESSION
     Route: 048
  2. CALCIUM WITH VITAMIN D [Concomitant]
     Route: 048

REACTIONS (1)
  - HEADACHE [None]
